FAERS Safety Report 23888057 (Version 1)
Quarter: 2024Q2

REPORT INFORMATION
  Report Type: Spontaneous
  Country: US (occurrence: US)
  Receive Date: 20240523
  Receipt Date: 20240523
  Transmission Date: 20240715
  Serious: Yes (Death)
  Sender: FDA-Public Use
  Company Number: US-AMGEN-USASP2024099570

PATIENT

DRUGS (4)
  1. FILGRASTIM [Suspect]
     Active Substance: FILGRASTIM
     Indication: Prophylaxis
     Dosage: DAYS 0-5 - 300 MICROGRAM/DAY FOR ADULTS {76 KG/480 MICROGRAM/KG IN ADULT MORE THAN OF EQUAL TO 76 KG
     Route: 058
  2. CLADRIBINE [Suspect]
     Active Substance: CLADRIBINE
     Indication: Prophylaxis
     Dosage: 5 MILLIGRAM/SQ. METER, QD (ON DAY 1-5)
     Route: 065
  3. CYTARABINE [Suspect]
     Active Substance: CYTARABINE
     Indication: Prophylaxis
     Dosage: 2 GRAM PER SQUARE METRE, QD (ON DAYS 1-5)
     Route: 065
  4. MITOXANTRONE [Suspect]
     Active Substance: MITOXANTRONE HYDROCHLORIDE
     Indication: Prophylaxis
     Dosage: 16 MILLIGRAM/SQ. METER, QD (ON DAYS 1-3)
     Route: 065

REACTIONS (1)
  - Completed suicide [Fatal]
